FAERS Safety Report 15635855 (Version 1)
Quarter: 2018Q4

REPORT INFORMATION
  Report Type: Spontaneous
  Country: NL (occurrence: NL)
  Receive Date: 20181120
  Receipt Date: 20181120
  Transmission Date: 20190205
  Serious: Yes (Hospitalization)
  Sender: FDA-Public Use
  Company Number: NL-ROCHE-2217302

PATIENT
  Age: 51 Year
  Sex: Female
  Weight: 137 kg

DRUGS (4)
  1. TRASTUZUMAB. [Concomitant]
     Active Substance: TRASTUZUMAB
     Dosage: 1100 MG DAG 1. 1E KUUR OP 26-9-2018, 2E OP 17-10-2018
     Route: 065
     Dates: start: 20180926
  2. CARBOPLATINE [Concomitant]
     Active Substance: CARBOPLATIN
     Dosage: 1200 MG DAG 1. 1E KUUR OP 26-9-2018, 2E OP 17-10-2018
     Route: 065
     Dates: start: 20180926
  3. PERTUZUMAB. [Suspect]
     Active Substance: PERTUZUMAB
     Indication: BREAST CANCER
     Dosage: 1E GIFT 840 MG, 2E GIFT 420 MG
     Route: 050
     Dates: start: 20180926
  4. PACLITAXEL. [Concomitant]
     Active Substance: PACLITAXEL
     Dosage: 204 MG DAG 1 EN DAG 8 VAN DE KUREN. 1E KUUR OP 26-9-2018, 2E OP 17-10-2018
     Route: 065
     Dates: start: 20180926

REACTIONS (3)
  - Hypokalaemia [Recovering/Resolving]
  - Hypomagnesaemia [Recovering/Resolving]
  - Diarrhoea [Recovering/Resolving]

NARRATIVE: CASE EVENT DATE: 20181001
